FAERS Safety Report 6493552-1 (Version None)
Quarter: 2009Q4

REPORT INFORMATION
  Report Type: 
  Country: None (occurrence: None)
  Receive Date: 20091214
  Receipt Date: 20091204
  Transmission Date: 20100525
  Serious: Yes (Other)
  Sender: FDA-Public Use
  Company Number: JP-PFIZER INC-2009307115

PATIENT
  Age: 34 Year
  Sex: Female

DRUGS (2)
  1. GABAPEN [Suspect]
     Indication: FIBROMYALGIA
     Dosage: UNK
     Route: 048
  2. DEPAKENE [Concomitant]
     Indication: CLONIC CONVULSION
     Route: 048

REACTIONS (1)
  - CLONIC CONVULSION [None]
